FAERS Safety Report 8288606-3 (Version None)
Quarter: 2012Q2

REPORT INFORMATION
  Report Type: 
  Country: None (occurrence: None)
  Receive Date: 20120416
  Receipt Date: 20120402
  Transmission Date: 20120825
  Serious: Yes (Other)
  Sender: FDA-Public Use
  Company Number: FR-RB-037600-12

PATIENT
  Sex: Male

DRUGS (14)
  1. ZOLPIDEM [Concomitant]
     Indication: INSOMNIA
     Dosage: DAILY IF NEEDED
     Route: 048
     Dates: start: 20091020
  2. CLONAZEPAM [Suspect]
     Indication: ANXIETY
     Route: 048
     Dates: start: 20091020, end: 20120203
  3. ZYPREXA [Suspect]
     Indication: SCHIZOPHRENIA, PARANOID TYPE
     Route: 065
  4. RISPERDAL [Concomitant]
     Indication: SCHIZOPHRENIA
     Route: 048
     Dates: start: 20091020
  5. OXAZEPAM [Concomitant]
     Indication: PRODUCT USED FOR UNKNOWN INDICATION
     Route: 048
     Dates: start: 20120213
  6. TRIMEPRAZINE TARTRATE [Concomitant]
     Indication: INSOMNIA
     Dosage: DAILY IF NEEDED
     Route: 048
     Dates: start: 20091020
  7. OLANZAPINE [Concomitant]
     Indication: PRODUCT USED FOR UNKNOWN INDICATION
     Route: 048
     Dates: start: 20120213
  8. NOZINAN [Concomitant]
     Indication: AGITATION
     Route: 048
     Dates: start: 20120117
  9. SUBUTEX [Suspect]
     Indication: PRODUCT USED FOR UNKNOWN INDICATION
     Dosage: DRUG DETAILS UNKNOWN
     Route: 065
  10. LEPTICUR [Concomitant]
     Indication: PRODUCT USED FOR UNKNOWN INDICATION
     Route: 048
     Dates: start: 20091020
  11. LOXAPINE HCL [Concomitant]
     Indication: PRODUCT USED FOR UNKNOWN INDICATION
     Route: 030
     Dates: start: 20091020
  12. QUETIAPINE [Suspect]
     Indication: SCHIZOPHRENIA, PARANOID TYPE
     Route: 048
     Dates: start: 20120203, end: 20120213
  13. ZOLPIDEM TARTRATE [Concomitant]
     Indication: INSOMNIA
     Route: 065
  14. POLYETHYLENE GLYCOL [Concomitant]
     Indication: PRODUCT USED FOR UNKNOWN INDICATION
     Route: 048
     Dates: start: 20091020

REACTIONS (9)
  - ALTERED STATE OF CONSCIOUSNESS [None]
  - HALLUCINATION, OLFACTORY [None]
  - ANXIETY [None]
  - WITHDRAWAL SYNDROME [None]
  - SUBSTANCE ABUSE [None]
  - AGITATION [None]
  - DISINHIBITION [None]
  - ABNORMAL BEHAVIOUR [None]
  - INSOMNIA [None]
